FAERS Safety Report 17870261 (Version 1)
Quarter: 2020Q2

REPORT INFORMATION
  Report Type: Other
  Country: GB (occurrence: GB)
  Receive Date: 20200608
  Receipt Date: 20200608
  Transmission Date: 20200714
  Serious: Yes (Life-Threatening, Hospitalization, Disabling, Other)
  Sender: FDA-Public Use
  Company Number: GB-COVIS PHARMA B.V.-2020COV00228

PATIENT
  Age: 27 Year
  Sex: Female
  Weight: 63 kg

DRUGS (22)
  1. QUETIAPINE. [Suspect]
     Active Substance: QUETIAPINE
     Indication: PSYCHOTIC DISORDER
     Dosage: 300 MG
     Route: 048
     Dates: start: 20110224, end: 20110506
  2. MIRTAZAPINE. [Suspect]
     Active Substance: MIRTAZAPINE
     Indication: DEPRESSION
     Dosage: 30 MG, 1X/DAY
     Route: 048
     Dates: start: 20100923, end: 20101108
  3. CLONAZEPAM. [Suspect]
     Active Substance: CLONAZEPAM
     Indication: SEDATION
     Dosage: UNK
     Route: 048
     Dates: start: 20110224, end: 20110410
  4. CODEINE [Suspect]
     Active Substance: CODEINE
     Dosage: 24- EVERY HOUR
     Route: 048
     Dates: start: 20110615, end: 20110723
  5. TRAMADOL. [Suspect]
     Active Substance: TRAMADOL
     Indication: OCULOGYRIC CRISIS
     Dosage: UNK, 1X/DAY
     Route: 048
     Dates: start: 20080722
  6. DOMPERIDONE [Suspect]
     Active Substance: DOMPERIDONE
  7. DIAZEPAM. [Suspect]
     Active Substance: DIAZEPAM
     Dosage: 5 MG, 1X/DAY
     Dates: start: 20110725
  8. TRAMADOL. [Suspect]
     Active Substance: TRAMADOL
     Dosage: UNK
     Route: 048
     Dates: start: 20081201, end: 20101210
  9. AMITRIPTYLINE [Suspect]
     Active Substance: AMITRIPTYLINE
     Indication: NEURALGIA
  10. OMEPRAZOLE MAGNESIUM. [Suspect]
     Active Substance: OMEPRAZOLE MAGNESIUM
     Indication: DYSPEPSIA
     Dosage: 20 MG, 1X/DAY
     Dates: start: 20110525
  11. LORAZEPAM. [Suspect]
     Active Substance: LORAZEPAM
     Indication: SEDATION
     Dosage: 1 MG
     Dates: start: 20110224, end: 20110410
  12. PROCYCLIDINE [Suspect]
     Active Substance: PROCYCLIDINE
     Dosage: 15 MG, 1X/DAY
     Route: 048
     Dates: start: 20110503, end: 20110510
  13. SEROXAT [Suspect]
     Active Substance: PAROXETINE HYDROCHLORIDE
     Indication: DEPRESSION
     Dosage: 20 MG, 1X/DAY
     Dates: start: 201105, end: 20110706
  14. CODEINE [Suspect]
     Active Substance: CODEINE
     Indication: ANALGESIC THERAPY
     Dosage: UNK
     Route: 048
     Dates: start: 2002, end: 2002
  15. LORAZEPAM. [Suspect]
     Active Substance: LORAZEPAM
     Dosage: 1 UNK
     Route: 048
     Dates: start: 20110523, end: 20110627
  16. PROCYCLIDINE [Suspect]
     Active Substance: PROCYCLIDINE
     Indication: EXTRAPYRAMIDAL DISORDER
     Dosage: UNK
     Dates: start: 1995, end: 1996
  17. PAROXETINE. [Suspect]
     Active Substance: PAROXETINE
     Indication: POST-TRAUMATIC STRESS DISORDER
     Dosage: 40 MG
     Route: 048
     Dates: start: 19990801, end: 20110706
  18. AMITRIPTYLINE [Suspect]
     Active Substance: AMITRIPTYLINE
     Indication: MUSCLE SPASMS
     Dosage: 25 MG, 1X/DAY AT BEDTIME
     Dates: start: 20110810
  19. DIAZEPAM. [Suspect]
     Active Substance: DIAZEPAM
     Indication: MUSCLE SPASMS
     Dosage: 8 MG, 1X/DAY
     Dates: start: 20110725
  20. TRAMADOL. [Suspect]
     Active Substance: TRAMADOL
     Indication: ANALGESIC THERAPY
     Dosage: 5 MG, 1X/DAY
     Route: 044
     Dates: start: 1995, end: 1995
  21. SEROXAT [Suspect]
     Active Substance: PAROXETINE HYDROCHLORIDE
     Indication: PRODUCT USED FOR UNKNOWN INDICATION
     Dosage: 20 MG, 3X/DAY
     Dates: start: 19990801, end: 201105
  22. CODEINE [Suspect]
     Active Substance: CODEINE
     Indication: SEROTONIN SYNDROME
     Dosage: UNK
     Route: 048
     Dates: start: 2008, end: 2008

REACTIONS (83)
  - Menstrual disorder [Unknown]
  - Visual impairment [Unknown]
  - Skin discolouration [Not Recovered/Not Resolved]
  - Drooling [Unknown]
  - Cyanosis [Unknown]
  - Neuroleptic malignant syndrome [Unknown]
  - Paraesthesia [Unknown]
  - Feeling of despair [Unknown]
  - Diarrhoea [Unknown]
  - Agitation [Unknown]
  - Emotional disorder [Unknown]
  - Dystonia [Unknown]
  - Balance disorder [Unknown]
  - Decreased appetite [Unknown]
  - Derealisation [Unknown]
  - Vomiting [Unknown]
  - Arthralgia [Unknown]
  - Drug interaction [Unknown]
  - Paralysis [Unknown]
  - Mood swings [Unknown]
  - Pallor [Unknown]
  - Dissociation [Unknown]
  - Dyskinesia [Unknown]
  - Drug withdrawal syndrome [Unknown]
  - Mydriasis [Unknown]
  - Vision blurred [Unknown]
  - Hallucinations, mixed [Unknown]
  - Asthenia [Unknown]
  - Urinary retention [Unknown]
  - Muscle rigidity [Unknown]
  - Speech disorder [Unknown]
  - Parosmia [Unknown]
  - Nightmare [Unknown]
  - Aphasia [Not Recovered/Not Resolved]
  - Muscle disorder [Unknown]
  - Restless legs syndrome [Unknown]
  - Headache [Unknown]
  - Confusional state [Not Recovered/Not Resolved]
  - Feeling of body temperature change [Unknown]
  - Delirium [Unknown]
  - Musculoskeletal stiffness [Unknown]
  - Schizophrenia [Unknown]
  - Toxicity to various agents [Unknown]
  - Sensory loss [Unknown]
  - Contusion [Unknown]
  - Muscle spasms [Unknown]
  - Sleep disorder [Unknown]
  - Depression [Unknown]
  - Pruritus [Unknown]
  - Incontinence [Unknown]
  - Psychotic disorder [Unknown]
  - Cogwheel rigidity [Unknown]
  - H1N1 influenza [Unknown]
  - Hypoaesthesia oral [Unknown]
  - Seizure [Unknown]
  - Depersonalisation/derealisation disorder [Unknown]
  - Gastric pH decreased [Unknown]
  - Tachycardia [Unknown]
  - Tremor [Unknown]
  - Anxiety [Unknown]
  - Hyperhidrosis [Unknown]
  - Dizziness [Unknown]
  - Heart rate increased [Unknown]
  - Blood sodium decreased [Unknown]
  - Swollen tongue [Unknown]
  - Mania [Unknown]
  - Restlessness [Unknown]
  - Hypoaesthesia [Unknown]
  - Serotonin syndrome [Not Recovered/Not Resolved]
  - Feeling jittery [Unknown]
  - Gait disturbance [Unknown]
  - Dyspnoea [Unknown]
  - Suicidal ideation [Not Recovered/Not Resolved]
  - Malaise [Unknown]
  - Exposure during pregnancy [Unknown]
  - Disorientation [Not Recovered/Not Resolved]
  - Swelling face [Unknown]
  - Eye pain [Unknown]
  - Premature labour [Unknown]
  - Disturbance in attention [Unknown]
  - Fatigue [Unknown]
  - Tinnitus [Unknown]
  - Pyrexia [Unknown]

NARRATIVE: CASE EVENT DATE: 2003
